FAERS Safety Report 24124741 (Version 1)
Quarter: 2024Q3

REPORT INFORMATION
  Report Type: Spontaneous
  Country: FR (occurrence: None)
  Receive Date: 20240723
  Receipt Date: 20240723
  Transmission Date: 20241017
  Serious: Yes (Hospitalization)
  Sender: ASTRAZENECA
  Company Number: 2024A160678

PATIENT
  Age: 69 Year
  Sex: Female
  Weight: 71 kg

DRUGS (1)
  1. DAPAGLIFLOZIN [Suspect]
     Active Substance: DAPAGLIFLOZIN
     Indication: Cardiac failure
     Route: 048
     Dates: start: 202308, end: 20240626

REACTIONS (4)
  - Diarrhoea [Recovered/Resolved]
  - Myalgia [Recovered/Resolved]
  - Abdominal pain [Recovered/Resolved]
  - Ketosis [Recovered/Resolved]

NARRATIVE: CASE EVENT DATE: 20240626
